FAERS Safety Report 10887004 (Version 2)
Quarter: 2015Q1

REPORT INFORMATION
  Report Type: Spontaneous
  Country: CO (occurrence: CO)
  Receive Date: 20150304
  Receipt Date: 20150330
  Transmission Date: 20150721
  Serious: Yes (Other)
  Sender: FDA-Public Use
  Company Number: CO-PFIZER INC-2015062020

PATIENT
  Age: 2 Year
  Sex: Female

DRUGS (4)
  1. COENZIMA Q-10 [Concomitant]
     Dosage: UNK
     Dates: start: 201301
  2. CARNITINE [Concomitant]
     Active Substance: CARNITINE
     Dosage: UNK
     Dates: start: 201301
  3. KEPPRA [Concomitant]
     Active Substance: LEVETIRACETAM
     Dosage: UNK
     Dates: start: 20130101, end: 20130101
  4. GENOTROPIN [Suspect]
     Active Substance: SOMATROPIN
     Indication: PRADER-WILLI SYNDROME
     Dosage: 1 DF, DAILY
     Route: 058
     Dates: start: 20150131, end: 20150322

REACTIONS (4)
  - Contusion [Not Recovered/Not Resolved]
  - Pyrexia [Recovered/Resolved]
  - Hyperhidrosis [Not Recovered/Not Resolved]
  - Overdose [Unknown]

NARRATIVE: CASE EVENT DATE: 20150202
